FAERS Safety Report 12380922 (Version 4)
Quarter: 2017Q2

REPORT INFORMATION
  Report Type: Spontaneous
  Country: DK (occurrence: DK)
  Receive Date: 20160518
  Receipt Date: 20170509
  Transmission Date: 20170830
  Serious: Yes (Hospitalization)
  Sender: FDA-Public Use
  Company Number: DK-PFIZER INC-2016259875

PATIENT
  Age: 62 Year
  Sex: Female

DRUGS (31)
  1. FLUOROURACIL ACCORD [Suspect]
     Active Substance: FLUOROURACIL
     Dosage: 675 MG, SINGLE
     Route: 042
     Dates: start: 20140319, end: 20140319
  2. FLUOROURACIL ACCORD [Suspect]
     Active Substance: FLUOROURACIL
     Dosage: 675 MG, SINGLE
     Route: 042
     Dates: start: 20140507, end: 20140507
  3. AMLODIPINE [Concomitant]
     Active Substance: AMLODIPINE BESYLATE
     Indication: HYPERTENSION
     Dosage: 10 MG, DAILY FOR MANY YEARS
     Dates: end: 20140627
  4. EMPERAL [Concomitant]
     Active Substance: METOCLOPRAMIDE HYDROCHLORIDE
     Indication: NAUSEA
     Dosage: 20 MG, AS NEEDED
     Route: 048
     Dates: start: 20140226, end: 20140627
  5. FLUOROURACIL ACCORD [Suspect]
     Active Substance: FLUOROURACIL
     Dosage: 675 MG, SINGLE
     Route: 042
     Dates: start: 20140424, end: 20140424
  6. FLUOROURACIL ACCORD [Suspect]
     Active Substance: FLUOROURACIL
     Dosage: 675 MG, SINGLE
     Route: 042
     Dates: start: 20140521, end: 20140521
  7. FRAGMIN [Concomitant]
     Active Substance: DALTEPARIN SODIUM
     Indication: THROMBOSIS PROPHYLAXIS
     Dosage: 12500 IU, DAILY
     Dates: start: 20140415, end: 20141015
  8. OXALIPLATIN. [Suspect]
     Active Substance: OXALIPLATIN
     Indication: RECTAL CANCER
     Dosage: 170 MG, SINGLE
     Route: 042
     Dates: start: 20140226, end: 20140226
  9. OXALIPLATIN. [Suspect]
     Active Substance: OXALIPLATIN
     Dosage: 75 MG, SINGLE
     Route: 042
     Dates: start: 20140521, end: 20140521
  10. OXALIPLATIN. [Suspect]
     Active Substance: OXALIPLATIN
     Dosage: 75 MG, SINGLE
     Route: 042
     Dates: start: 20140604, end: 20140604
  11. FLUOROURACIL ACCORD [Suspect]
     Active Substance: FLUOROURACIL
     Indication: RECTAL CANCER
     Dosage: 1000 MG, SINGLE
     Route: 042
     Dates: start: 20140226, end: 20140226
  12. FLUOROURACIL ACCORD [Suspect]
     Active Substance: FLUOROURACIL
     Dosage: 675 MG, SINGLE
     Route: 042
     Dates: start: 20140402, end: 20140402
  13. FLUOROURACIL ACCORD [Suspect]
     Active Substance: FLUOROURACIL
     Dosage: 675 MG, SINGLE
     Route: 042
     Dates: start: 20140508, end: 20140508
  14. FLUOROURACIL ACCORD [Suspect]
     Active Substance: FLUOROURACIL
     Dosage: 675 MG, SINGLE
     Route: 042
     Dates: start: 20140522, end: 20140522
  15. FLUOROURACIL ACCORD [Suspect]
     Active Substance: FLUOROURACIL
     Dosage: 675 MG, SINGLE
     Route: 042
     Dates: start: 20140604, end: 20140604
  16. FLUOROURACIL ACCORD [Suspect]
     Active Substance: FLUOROURACIL
     Dosage: 675 MG, SINGLE
     Route: 042
     Dates: start: 20140605, end: 20140605
  17. ANCOZAN COMP [Concomitant]
     Active Substance: HYDROCHLOROTHIAZIDE\LOSARTAN POTASSIUM
     Indication: HYPERTENSION
     Dosage: 100MG +25MG, 1 DF, DAILY FOR MANY YEARS
     Dates: end: 20140627
  18. METOPROLOL SUCCINATE. [Concomitant]
     Active Substance: METOPROLOL SUCCINATE
     Indication: HYPERTENSION
     Dosage: 50 MG, DAILYFOR MANY YEARS
     Dates: end: 20140627
  19. ACTILAX [Concomitant]
     Active Substance: LACTULOSE
     Indication: CONSTIPATION
     Dosage: 7.5 MG/ML. IN THE DOSE 5-10 DROPS
     Route: 048
     Dates: start: 20140226, end: 201406
  20. FLUOROURACIL ACCORD [Suspect]
     Active Substance: FLUOROURACIL
     Dosage: 675 MG, SINGLE
     Route: 042
     Dates: start: 20140403, end: 20140403
  21. ALOXI [Concomitant]
     Active Substance: PALONOSETRON HYDROCHLORIDE
     Indication: NAUSEA
     Dosage: 500 MICROGRAM, AS NEEDED
     Route: 048
     Dates: start: 20140226, end: 201406
  22. PREDNISOLON [Concomitant]
     Active Substance: PREDNISOLONE
     Indication: NAUSEA
     Dosage: 1400 MG, 1X/DAY
     Dates: start: 20140226, end: 201406
  23. FLUOROURACIL ACCORD [Suspect]
     Active Substance: FLUOROURACIL
     Dosage: 1000 MG, SINGLE
     Route: 042
     Dates: start: 20140227, end: 20140227
  24. FLUOROURACIL ACCORD [Suspect]
     Active Substance: FLUOROURACIL
     Dosage: 675 MG, SINGLE
     Route: 042
     Dates: start: 20140423, end: 20140423
  25. ELTROXIN [Concomitant]
     Active Substance: LEVOTHYROXINE
     Dosage: DOSE CHANGED SEVERAL TIMES
     Dates: start: 201403
  26. OXALIPLATIN. [Suspect]
     Active Substance: OXALIPLATIN
     Dosage: 115 MG, SINGLE
     Route: 042
     Dates: start: 20140319, end: 20140319
  27. OXALIPLATIN. [Suspect]
     Active Substance: OXALIPLATIN
     Dosage: 115 MG, SINGLE
     Route: 042
     Dates: start: 20140402, end: 20140402
  28. OXALIPLATIN. [Suspect]
     Active Substance: OXALIPLATIN
     Dosage: 75 MG, SINGLE
     Route: 042
     Dates: start: 20140423, end: 20140423
  29. OXALIPLATIN. [Suspect]
     Active Substance: OXALIPLATIN
     Dosage: 75 MG, SINGLE
     Route: 042
     Dates: start: 20140507, end: 20140507
  30. FLUOROURACIL ACCORD [Suspect]
     Active Substance: FLUOROURACIL
     Dosage: 675 MG, SINGLE
     Route: 042
     Dates: start: 20140320, end: 20140320
  31. KALEORID [Concomitant]
     Active Substance: POTASSIUM CHLORIDE
     Dosage: 750 MG, 2X/DAY FOR MANY YEARS

REACTIONS (11)
  - Amnesia [Not Recovered/Not Resolved]
  - Language disorder [Unknown]
  - Alopecia [Recovered/Resolved]
  - Bone marrow failure [Recovered/Resolved]
  - Nasal mucosal disorder [Recovered/Resolved]
  - Memory impairment [Not Recovered/Not Resolved]
  - Cognitive disorder [Recovering/Resolving]
  - Dyspnoea [Not Recovered/Not Resolved]
  - Fatigue [Recovered/Resolved]
  - Disturbance in attention [Recovered/Resolved]
  - Learning disability [Not Recovered/Not Resolved]

NARRATIVE: CASE EVENT DATE: 2014
